FAERS Safety Report 9516340 (Version 2)
Quarter: 2013Q3

REPORT INFORMATION
  Report Type: Spontaneous
  Country: GB (occurrence: None)
  Receive Date: 20130909
  Receipt Date: 20130920
  Transmission Date: 20140515
  Serious: Yes (Other)
  Sender: FDA-Public Use
  Company Number: AUR-APL-2013-07266

PATIENT
  Sex: Male

DRUGS (2)
  1. DONEPEZIL [Suspect]
     Indication: DEMENTIA ALZHEIMER^S TYPE
     Dosage: 5 MG, 1 D, UNKNOWN
     Dates: start: 20130813, end: 20130815
  2. LEVEMIR (INSULIN DETEMIR) [Concomitant]

REACTIONS (5)
  - Blood glucose increased [None]
  - Chest pain [None]
  - Malaise [None]
  - Gait disturbance [None]
  - Fatigue [None]
